FAERS Safety Report 9492303 (Version 3)
Quarter: 2013Q4

REPORT INFORMATION
  Report Type: Spontaneous
  Country: IT (occurrence: IT)
  Receive Date: 20130830
  Receipt Date: 20131022
  Transmission Date: 20140711
  Serious: Yes (Hospitalization)
  Sender: FDA-Public Use
  Company Number: PHHY2013IT093793

PATIENT
  Sex: Male

DRUGS (3)
  1. SIMVASTATIN [Suspect]
     Dosage: 20 MG, QD
     Route: 048
     Dates: start: 20130615
  2. PLAVIX [Suspect]
     Indication: ANGIOPLASTY
     Dosage: 75 MG, QD
     Route: 048
     Dates: start: 20130615
  3. CARDIOASPIRIN [Suspect]
     Indication: ANGIOPLASTY
     Dosage: 100 MG, QD
     Route: 048
     Dates: start: 20130615

REACTIONS (2)
  - Vertigo [Unknown]
  - Syncope [Unknown]
